FAERS Safety Report 7761572-2 (Version None)
Quarter: 2011Q3

REPORT INFORMATION
  Report Type: 
  Country: None (occurrence: None)
  Receive Date: 20110920
  Receipt Date: 20110913
  Transmission Date: 20111222
  Serious: Yes (Other)
  Sender: FDA-Public Use
  Company Number: US-UCBSA-023891

PATIENT
  Sex: Male
  Weight: 4.09 kg

DRUGS (7)
  1. VITAMIN AND MINERAL PRENATAL SUPPLEMENT W/ FOLIC ACID CAP [Concomitant]
     Indication: PREGNANCY
     Dosage: 1 CAPSULE
     Route: 064
     Dates: end: 20110204
  2. KEPPRA [Suspect]
     Route: 064
     Dates: start: 20101005
  3. KEPPRA [Suspect]
     Route: 064
     Dates: start: 20110105, end: 20110204
  4. FOLIC ACID [Concomitant]
     Indication: PREGNANCY
     Route: 064
     Dates: end: 20110204
  5. FLUZONE VACCINE [Concomitant]
     Indication: PREGNANCY
     Dosage: 1 DOSE
     Route: 064
     Dates: start: 20100923
  6. KEPPRA [Suspect]
     Indication: EPILEPSY
     Dosage: PRIOR TO CONCEPTION
     Route: 064
  7. KEPPRA [Suspect]
     Route: 063
     Dates: start: 20110101

REACTIONS (3)
  - HYDRONEPHROSIS [None]
  - MATERNAL EXPOSURE DURING PREGNANCY [None]
  - EXPOSURE DURING BREAST FEEDING [None]
